FAERS Safety Report 7573185-6 (Version None)
Quarter: 2011Q2

REPORT INFORMATION
  Report Type: 
  Country: None (occurrence: None)
  Receive Date: 20110627
  Receipt Date: 20110620
  Transmission Date: 20111010
  Serious: Yes (Other)
  Sender: FDA-Public Use
  Company Number: GB-ROXANE LABORATORIES, INC.-2011-RO-00867RO

PATIENT
  Age: 9 Month

DRUGS (3)
  1. CYCLOPHOSPHAMIDE [Suspect]
     Indication: PROPHYLAXIS AGAINST TRANSPLANT REJECTION
  2. TREOSULFAN [Suspect]
     Indication: PROPHYLAXIS AGAINST TRANSPLANT REJECTION
  3. ALEMTUZUMAB [Suspect]

REACTIONS (3)
  - NEPHROTIC SYNDROME [None]
  - PERINEAL ULCERATION [None]
  - GRAFT VERSUS HOST DISEASE [None]
